FAERS Safety Report 8443558-8 (Version None)
Quarter: 2012Q2

REPORT INFORMATION
  Report Type: 
  Country: None (occurrence: None)
  Receive Date: 20120618
  Receipt Date: 20120611
  Transmission Date: 20120825
  Serious: Yes (Hospitalization, Other)
  Sender: FDA-Public Use
  Company Number: US-PFIZER INC-2011066057

PATIENT
  Sex: Male

DRUGS (9)
  1. LEXAPRO [Concomitant]
     Indication: ANXIETY
     Dosage: UNK
     Dates: start: 20060101
  2. CARDURA [Concomitant]
     Indication: HYPERTENSION
     Dosage: UNK
     Dates: start: 20090101
  3. XANAX [Concomitant]
     Indication: ANXIETY
     Dosage: UNK
     Dates: start: 20060101
  4. CHANTIX [Suspect]
     Indication: SMOKING CESSATION THERAPY
     Dosage: STARTER PACK AND 1 MG
     Dates: start: 20100810, end: 20101120
  5. NORVASC [Concomitant]
     Indication: HYPERTENSION
     Dosage: UNK
     Dates: start: 20060101
  6. PEPCID [Concomitant]
     Indication: GASTROOESOPHAGEAL REFLUX DISEASE
     Dosage: UNK
     Dates: start: 20060101, end: 20110101
  7. CATAPRES [Concomitant]
     Indication: HYPERTENSION
     Dosage: UNK
     Dates: start: 20060101, end: 20110101
  8. BENICAR [Concomitant]
     Indication: HYPERTENSION
     Dosage: UNK
     Dates: start: 20060101, end: 20110101
  9. ZANAFLEX [Concomitant]
     Indication: MUSCLE RELAXANT THERAPY
     Dosage: UNK
     Dates: start: 20060101

REACTIONS (10)
  - SUICIDE ATTEMPT [None]
  - PANIC ATTACK [None]
  - AMNESIA [None]
  - HALLUCINATION, VISUAL [None]
  - ANXIETY [None]
  - PRURITUS [None]
  - SUICIDAL IDEATION [None]
  - DEPRESSION [None]
  - HALLUCINATION, AUDITORY [None]
  - LOSS OF CONSCIOUSNESS [None]
